FAERS Safety Report 5164240-9 (Version None)
Quarter: 2006Q4

REPORT INFORMATION
  Report Type: 
  Country: None (occurrence: None)
  Receive Date: 20061204
  Receipt Date: 20061124
  Transmission Date: 20070319
  Serious: Yes (Congenital Anomaly)
  Sender: FDA-Public Use
  Company Number: GB-ABBOTT-06P-167-0351596-00

PATIENT
  Sex: Male

DRUGS (1)
  1. EPILIM [Suspect]
     Indication: DRUG EXPOSURE DURING PREGNANCY
     Route: 065

REACTIONS (1)
  - FOETAL ANTICONVULSANT SYNDROME [None]
